FAERS Safety Report 6646620-5 (Version None)
Quarter: 2010Q1

REPORT INFORMATION
  Report Type: 
  Country: None (occurrence: None)
  Receive Date: 20100323
  Receipt Date: 20100318
  Transmission Date: 20100710
  Serious: Yes (Hospitalization)
  Sender: FDA-Public Use
  Company Number: US-B.I. PHARMACEUTICALS,INC./RIDGEFIELD-2010-BP-02481BP

PATIENT
  Sex: Male

DRUGS (7)
  1. SPIRIVA [Suspect]
     Indication: CHRONIC OBSTRUCTIVE PULMONARY DISEASE
     Dosage: 18 MCG
     Route: 055
     Dates: start: 20090101
  2. COUMADIN [Concomitant]
  3. POTASSIUM [Concomitant]
  4. OMEPRAZOLE [Concomitant]
  5. ASMANAEX INHALER [Concomitant]
  6. ALBUTEROL [Concomitant]
  7. LOVASTATIN [Concomitant]

REACTIONS (2)
  - CHEST PAIN [None]
  - PNEUMONIA [None]
